FAERS Safety Report 10648696 (Version 1)
Quarter: 2014Q4

REPORT INFORMATION
  Report Type: Spontaneous
  Country: FR (occurrence: FR)
  Receive Date: 20141212
  Receipt Date: 20141212
  Transmission Date: 20150529
  Serious: Yes (Hospitalization)
  Sender: FDA-Public Use
  Company Number: FR-SA-2014SA169095

PATIENT
  Age: 87 Year
  Sex: Female

DRUGS (10)
  1. DETENSIEL [Concomitant]
     Active Substance: BISOPROLOL FUMARATE
     Dosage: 10MG
     Route: 048
  2. LASILIX [Suspect]
     Active Substance: FUROSEMIDE
     Route: 065
  3. SPASFON [Concomitant]
     Active Substance: PHLOROGLUCINOL
     Route: 048
  4. COVERSYL [Suspect]
     Active Substance: PERINDOPRIL
     Indication: HYPERTENSIVE HEART DISEASE
     Dosage: STRENGTH:5 MG, FILM COATED DIVISIBLE TABLET
     Route: 048
     Dates: end: 20140606
  5. COUMADIN [Concomitant]
     Active Substance: WARFARIN SODIUM
     Dosage: 2MG
     Route: 065
  6. NIFUROXAZIDE [Concomitant]
     Active Substance: NIFUROXAZIDE
     Indication: DIARRHOEA
     Dosage: 100 MG
     Route: 048
  7. DIFFU K [Concomitant]
     Active Substance: POTASSIUM CHLORIDE
     Route: 048
  8. LASILIX [Suspect]
     Active Substance: FUROSEMIDE
     Dosage: STRENGTH:40 MG
     Route: 048
     Dates: end: 20140606
  9. COVERSYL [Suspect]
     Active Substance: PERINDOPRIL
     Indication: HYPERTENSIVE HEART DISEASE
     Route: 048
  10. COUMADIN [Concomitant]
     Active Substance: WARFARIN SODIUM
     Dosage: 2MG
     Route: 048
     Dates: end: 20140606

REACTIONS (3)
  - Circulatory collapse [Recovered/Resolved]
  - Hypotension [Recovered/Resolved]
  - Acute kidney injury [Recovered/Resolved]

NARRATIVE: CASE EVENT DATE: 20140606
